FAERS Safety Report 13858854 (Version 1)
Quarter: 2017Q3

REPORT INFORMATION
  Report Type: Spontaneous
  Country: US (occurrence: US)
  Receive Date: 20170811
  Receipt Date: 20170811
  Transmission Date: 20171127
  Serious: Yes (Death, Other)
  Sender: FDA-Public Use
  Company Number: US-SHIRE-US201717269

PATIENT
  Age: 42 Year

DRUGS (2)
  1. CINRYZE [Suspect]
     Active Substance: HUMAN C1-ESTERASE INHIBITOR
     Indication: HEREDITARY ANGIOEDEMA
     Dosage: 1000 IU, EVERY 3 DAYS
     Route: 065
     Dates: end: 20170708
  2. KALBITOR [Suspect]
     Active Substance: ECALLANTIDE
     Indication: HEREDITARY ANGIOEDEMA
     Dosage: UNK
     Route: 065
     Dates: end: 20170708

REACTIONS (1)
  - Death [Fatal]

NARRATIVE: CASE EVENT DATE: 20170708
